FAERS Safety Report 6472679-4 (Version None)
Quarter: 2009Q4

REPORT INFORMATION
  Report Type: 
  Country: None (occurrence: None)
  Receive Date: 20091201
  Receipt Date: 20091118
  Transmission Date: 20100525
  Serious: Yes (Other)
  Sender: FDA-Public Use
  Company Number: 2009SP037136

PATIENT
  Sex: Male

DRUGS (1)
  1. REMERON [Suspect]
     Indication: DRUG USE FOR UNKNOWN INDICATION
     Dosage: 45 MG;QD;, 45 MG;TID;

REACTIONS (4)
  - AGGRESSION [None]
  - IMPRISONMENT [None]
  - INCORRECT DOSE ADMINISTERED [None]
  - OVERDOSE [None]
